FAERS Safety Report 22154295 (Version 1)
Quarter: 2023Q1

REPORT INFORMATION
  Report Type: Spontaneous
  Country: ES (occurrence: ES)
  Receive Date: 20230330
  Receipt Date: 20230330
  Transmission Date: 20230417
  Serious: Yes (Death, Hospitalization, Other)
  Sender: FDA-Public Use
  Company Number: ES-AEMPS-633876

PATIENT
  Age: 96 Year
  Sex: Female

DRUGS (1)
  1. LEVOFLOXACIN [Suspect]
     Active Substance: LEVOFLOXACIN
     Indication: Respiratory tract infection
     Dosage: 500MG/24H
     Route: 048
     Dates: start: 20191029, end: 20191103

REACTIONS (2)
  - Tubulointerstitial nephritis [Fatal]
  - Hepatitis [Fatal]

NARRATIVE: CASE EVENT DATE: 20191103
